FAERS Safety Report 8737900 (Version 2)
Quarter: 2013Q4

REPORT INFORMATION
  Report Type: Spontaneous
  Country: DE (occurrence: DE)
  Receive Date: 20120823
  Receipt Date: 20131031
  Transmission Date: 20140711
  Serious: Yes (Hospitalization)
  Sender: FDA-Public Use
  Company Number: DE-MERCK-1208DEU004241

PATIENT
  Age: 62 Year
  Sex: Male

DRUGS (10)
  1. JANUMET [Suspect]
     Indication: DIABETES MELLITUS
     Dosage: UNK
     Route: 048
     Dates: end: 201203
  2. JANUMET [Suspect]
     Dosage: UNK
     Route: 048
     Dates: start: 20120725
  3. ASS 100 [Concomitant]
     Dosage: UNK
     Dates: start: 201207
  4. PANTOPRAZOLE [Concomitant]
     Dosage: UNK
     Dates: start: 201207
  5. AMLODIPINE [Concomitant]
     Dosage: UNK
     Dates: start: 201207
  6. TORSEMIDE [Concomitant]
     Dosage: UNK
     Dates: start: 201207
  7. FALITHROM [Concomitant]
     Dosage: UNK
     Dates: start: 201207
  8. NAC [Concomitant]
     Dosage: UNK
     Dates: start: 201207
  9. DIGIMERCK [Concomitant]
     Dosage: UNK
     Dates: start: 201207
  10. METOHEXAL [Concomitant]
     Dosage: UNK
     Dates: start: 201207

REACTIONS (5)
  - Atrial fibrillation [Recovered/Resolved]
  - Bronchitis [Recovered/Resolved]
  - Generalised oedema [Recovered/Resolved]
  - Dyspnoea [Recovered/Resolved]
  - Dyspnoea [Not Recovered/Not Resolved]
